FAERS Safety Report 9496291 (Version 1)
Quarter: 2013Q3

REPORT INFORMATION
  Report Type: Spontaneous
  Country: US (occurrence: US)
  Receive Date: 20130904
  Receipt Date: 20130904
  Transmission Date: 20140515
  Serious: No
  Sender: FDA-Public Use
  Company Number: US-B.I. PHARMACEUTICALS,INC./RIDGEFIELD-2013-BI-26909BP

PATIENT
  Sex: Male

DRUGS (6)
  1. PRADAXA [Suspect]
     Indication: ATRIAL FIBRILLATION
     Dosage: 300 MG
     Route: 048
     Dates: start: 2011, end: 201305
  2. PRADAXA [Suspect]
     Dosage: 150 MG
     Route: 048
     Dates: start: 201305
  3. TOPROL [Concomitant]
     Indication: HYPERTENSION
  4. LANTUS [Concomitant]
     Indication: DIABETES MELLITUS
     Dosage: STRENGTH: 5 UNITS; DAILY DOSE: 5 UNITS
     Route: 058
  5. LOSARTAN [Concomitant]
     Indication: HYPERTENSION
     Route: 048
  6. METFORMIN [Concomitant]
     Indication: DIABETES MELLITUS
     Dosage: 2000 MG
     Route: 048

REACTIONS (3)
  - Injury [Recovered/Resolved]
  - Joint injury [Recovered/Resolved]
  - Musculoskeletal pain [Not Recovered/Not Resolved]
